FAERS Safety Report 6759819-4 (Version None)
Quarter: 2010Q2

REPORT INFORMATION
  Report Type: 
  Country: None (occurrence: None)
  Receive Date: 20100608
  Receipt Date: 20100528
  Transmission Date: 20101027
  Serious: Yes (Death)
  Sender: FDA-Public Use
  Company Number: US-BAYER-201027099GPV

PATIENT

DRUGS (8)
  1. ALEMTUZUMAB [Suspect]
     Indication: HAEMATOLOGICAL MALIGNANCY
     Dosage: FIRST DOSE 3 MG, SECOND DOSE 10 MG, AND THIRD DOSE 30 MG, FIRST WEEK
     Route: 042
  2. ALEMTUZUMAB [Suspect]
     Dosage: FIRST DOSE 3 MG, SECOND DOSE 10 MG, ALL SUBSEQUENT DOSES WERE 30 MG (12 DOSES)
     Route: 042
  3. FLUDARABINE [Suspect]
     Indication: HAEMATOLOGICAL MALIGNANCY
     Dosage: ON DAYS 1-4, REPEATED AT 28-DAY INTERVALS FOR 4 COURSES
     Route: 042
  4. RITUXIMAB [Suspect]
     Indication: HAEMATOLOGICAL MALIGNANCY
     Dosage: WEEKLY FOR THE FIRST 4 WEEKS (4 COURSES)
     Route: 042
  5. ACETAMINOPHEN [Concomitant]
     Indication: PREMEDICATION
     Dosage: ADMINISTERED 30 M INUTES BEFORE INITIATING ALEMTUZUMAB INFUSION
     Route: 048
  6. DIPHENHYDRAMINE HYDROCHLORIDE [Concomitant]
     Indication: PREMEDICATION
     Dosage: ORALLY OR INTRAVENOUS; ADMINISTERED 30 MINUTES BEFORE INITIATING ALEMTUZUMAB INFUSION
  7. TRIMETHOPRIM + SULFAMETHOXAZOLE [Concomitant]
     Indication: PROPHYLAXIS
     Dosage: 1 TABLET GIVEN TWICE DAILY 3 TIMES WEEKLY; CONTINUED FOR 2 MONTHS AFTER COMPLETION OF ALEMTUZUMAB
     Route: 048
  8. FAMCICLOVIR [Concomitant]
     Indication: PROPHYLAXIS
     Dosage: TOTAL DAILY DOSE: 500 MG

REACTIONS (5)
  - ASTHENIA [None]
  - DECREASED APPETITE [None]
  - DEHYDRATION [None]
  - DISEASE RECURRENCE [None]
  - HYPONATRAEMIA [None]
